FAERS Safety Report 14084066 (Version 1)
Quarter: 2017Q4

REPORT INFORMATION
  Report Type: Spontaneous
  Country: US (occurrence: US)
  Receive Date: 20171013
  Receipt Date: 20171013
  Transmission Date: 20180321
  Serious: No
  Sender: FDA-Public Use
  Company Number: None

PATIENT
  Age: 6 Year
  Sex: Male
  Weight: 18.9 kg

DRUGS (2)
  1. DAYTRANA [Suspect]
     Active Substance: METHYLPHENIDATE
     Indication: ATTENTION DEFICIT/HYPERACTIVITY DISORDER
     Dosage: QUANTITY:1 PATCH(ES);?
     Route: 062
  2. GUANFACINE. [Concomitant]
     Active Substance: GUANFACINE

REACTIONS (3)
  - Application site irritation [None]
  - Product adhesion issue [None]
  - Medication residue present [None]
